FAERS Safety Report 13533337 (Version 8)
Quarter: 2020Q3

REPORT INFORMATION
  Report Type: Report from Study
  Country: KR (occurrence: KR)
  Receive Date: 20170510
  Receipt Date: 20180419
  Transmission Date: 20201105
  Serious: Yes (Death, Life-Threatening, Hospitalization)
  Sender: FDA-Public Use
  Company Number: KR-JNJFOC-20170500814

PATIENT
  Age: 44 Year
  Sex: Female
  Weight: 54 kg

DRUGS (16)
  1. METHYLPREDNISOLONE. [Concomitant]
     Active Substance: METHYLPREDNISOLONE
     Indication: NATURAL KILLER-CELL LYMPHOBLASTIC LYMPHOMA
  2. TACENOL [Concomitant]
     Indication: PYREXIA
     Route: 048
     Dates: start: 20170419, end: 20170419
  3. SEPTRIN [Concomitant]
     Active Substance: SULFAMETHOXAZOLE\TRIMETHOPRIM
     Indication: PROPHYLAXIS
  4. ACETAMINOPHEN. [Concomitant]
     Active Substance: ACETAMINOPHEN
     Indication: PYREXIA
  5. ACETAMINOPHEN. [Concomitant]
     Active Substance: ACETAMINOPHEN
     Indication: CHILLS
  6. TACENOL [Concomitant]
     Indication: HEADACHE
     Route: 048
     Dates: start: 20170419, end: 20170419
  7. CHLORPHENAMINE MALEATE [Concomitant]
     Active Substance: CHLORPHENIRAMINE MALEATE
     Indication: PRURITUS
     Dates: start: 20170418, end: 20170418
  8. OMED [Concomitant]
     Indication: PROPHYLAXIS
  9. ACETAMINOPHEN. [Concomitant]
     Active Substance: ACETAMINOPHEN
     Indication: HEADACHE
  10. HEPARIN SODIUM. [Concomitant]
     Active Substance: HEPARIN SODIUM
     Indication: FLUSHING
     Dates: start: 20170418, end: 20170419
  11. TACENOL [Concomitant]
     Indication: HEADACHE
     Route: 048
     Dates: start: 20170418, end: 20170418
  12. DARATUMUMAB [Suspect]
     Active Substance: DARATUMUMAB
     Indication: ANGIOCENTRIC LYMPHOMA
     Route: 042
     Dates: start: 20170418, end: 20170425
  13. TACENOL [Concomitant]
     Indication: CHILLS
     Route: 048
     Dates: start: 20170418, end: 20170418
  14. TACENOL [Concomitant]
     Indication: PYREXIA
     Route: 048
     Dates: start: 20170418, end: 20170418
  15. TACENOL [Concomitant]
     Indication: CHILLS
     Route: 048
     Dates: start: 20170419, end: 20170419
  16. AVIL [Concomitant]
     Active Substance: PHENIRAMINE
     Indication: PRURITUS

REACTIONS (5)
  - Rash [Recovered/Resolved]
  - Pneumonia [Recovered/Resolved]
  - Septic shock [Recovered/Resolved]
  - Febrile neutropenia [Not Recovered/Not Resolved]
  - Thrombocytopenia [Not Recovered/Not Resolved]

NARRATIVE: CASE EVENT DATE: 20170430
